FAERS Safety Report 22056068 (Version 2)
Quarter: 2023Q1

REPORT INFORMATION
  Report Type: Report from Study
  Country: US (occurrence: US)
  Receive Date: 20230302
  Receipt Date: 20230328
  Transmission Date: 20230418
  Serious: No
  Sender: FDA-Public Use
  Company Number: US-BoehringerIngelheim-2023-BI-222406

PATIENT
  Age: 55 Year
  Sex: Male

DRUGS (2)
  1. OFEV [Suspect]
     Active Substance: NINTEDANIB
     Indication: Interstitial lung disease
     Route: 048
     Dates: start: 20230209
  2. OFEV [Suspect]
     Active Substance: NINTEDANIB

REACTIONS (9)
  - Oxygen saturation decreased [Unknown]
  - Abdominal pain upper [Not Recovered/Not Resolved]
  - Abdominal pain upper [Recovered/Resolved]
  - Abdominal discomfort [Recovered/Resolved]
  - Colitis ulcerative [Not Recovered/Not Resolved]
  - Frequent bowel movements [Not Recovered/Not Resolved]
  - Constipation [Not Recovered/Not Resolved]
  - Colitis [Not Recovered/Not Resolved]
  - Faeces soft [Unknown]

NARRATIVE: CASE EVENT DATE: 20230224
